FAERS Safety Report 16086125 (Version 1)
Quarter: 2019Q1

REPORT INFORMATION
  Report Type: Report from Study
  Country: JP (occurrence: JP)
  Receive Date: 20190318
  Receipt Date: 20190318
  Transmission Date: 20190418
  Serious: Yes (Death)
  Sender: FDA-Public Use
  Company Number: JP-ASTRAZENECA-2018SF33173

PATIENT
  Age: 73 Year
  Sex: Female
  Weight: 51 kg

DRUGS (13)
  1. AMLODIN OD [Concomitant]
     Active Substance: AMLODIPINE BESYLATE
     Route: 048
     Dates: end: 20180320
  2. ISOPIT [Concomitant]
     Route: 062
     Dates: end: 20180320
  3. CRESTOR [Concomitant]
     Active Substance: ROSUVASTATIN CALCIUM
     Indication: DYSLIPIDAEMIA
     Route: 048
     Dates: end: 20180320
  4. SEIBULE [Concomitant]
     Active Substance: MIGLITOL
     Indication: TYPE 2 DIABETES MELLITUS
     Route: 048
     Dates: end: 20180320
  5. BAYASPIRIN [Concomitant]
     Active Substance: ASPIRIN
     Route: 048
     Dates: end: 20180320
  6. LETROZOLE. [Concomitant]
     Active Substance: LETROZOLE
     Route: 048
     Dates: end: 20180320
  7. METGLUCO [Concomitant]
     Active Substance: METFORMIN HYDROCHLORIDE
     Indication: TYPE 2 DIABETES MELLITUS
     Route: 048
     Dates: end: 20180320
  8. VICTOZA [Concomitant]
     Active Substance: LIRAGLUTIDE
     Indication: TYPE 2 DIABETES MELLITUS
     Dates: end: 20180320
  9. EFIENT [Concomitant]
     Active Substance: PRASUGREL HYDROCHLORIDE
     Route: 048
     Dates: end: 20161219
  10. TRESIBA [Concomitant]
     Active Substance: INSULIN DEGLUDEC
     Indication: TYPE 2 DIABETES MELLITUS
     Dates: end: 20180320
  11. EDIROL [Concomitant]
     Active Substance: ELDECALCITOL
     Route: 048
     Dates: end: 20180320
  12. CANDESARTAN CILEXETIL. [Concomitant]
     Active Substance: CANDESARTAN CILEXETIL
     Route: 048
     Dates: end: 20180320
  13. FORXIGA [Suspect]
     Active Substance: DAPAGLIFLOZIN
     Indication: TYPE 2 DIABETES MELLITUS
     Route: 048
     Dates: start: 20150929, end: 20180320

REACTIONS (2)
  - Pulmonary embolism [Fatal]
  - Compression fracture [Not Recovered/Not Resolved]

NARRATIVE: CASE EVENT DATE: 20170812
